FAERS Safety Report 7651700-1 (Version None)
Quarter: 2011Q3

REPORT INFORMATION
  Report Type: 
  Country: None (occurrence: None)
  Receive Date: 20110802
  Receipt Date: 20110720
  Transmission Date: 20111222
  Serious: Yes (Other)
  Sender: FDA-Public Use
  Company Number: JP-WATSON-2011-11543

PATIENT
  Age: 69 Year
  Sex: Male

DRUGS (2)
  1. TACROLIMUS [Suspect]
     Indication: LIVER TRANSPLANT
     Dosage: UNKNOWN
     Route: 065
  2. PREDNISOLONE [Suspect]
     Indication: LIVER TRANSPLANT
     Dosage: UNK
     Route: 065

REACTIONS (6)
  - NOCARDIOSIS [None]
  - MUSCLE ABSCESS [None]
  - BRAIN ABSCESS [None]
  - ADRENAL GLAND ABSCESS [None]
  - SUBCUTANEOUS ABSCESS [None]
  - LUNG ABSCESS [None]
